FAERS Safety Report 7860854-3 (Version None)
Quarter: 2011Q4

REPORT INFORMATION
  Report Type: 
  Country: None (occurrence: None)
  Receive Date: 20111027
  Receipt Date: 20111020
  Transmission Date: 20120403
  Serious: Yes (Hospitalization, Other)
  Sender: FDA-Public Use
  Company Number: CZ-ABBOTT-11P-217-0864254-00

PATIENT
  Sex: Female
  Weight: 80 kg

DRUGS (4)
  1. HUMIRA [Suspect]
     Indication: CROHN'S DISEASE
     Dates: start: 20090101
  2. PENTASA [Concomitant]
     Indication: PRODUCT USED FOR UNKNOWN INDICATION
  3. HUMIRA [Suspect]
     Indication: PSORIATIC ARTHROPATHY
     Route: 058
     Dates: start: 20110718
  4. FOLIC ACID [Concomitant]
     Indication: PRODUCT USED FOR UNKNOWN INDICATION

REACTIONS (18)
  - OVERWEIGHT [None]
  - ANAPHYLACTIC SHOCK [None]
  - STAPHYLOCOCCAL INFECTION [None]
  - ASTHENIA [None]
  - CHAPPED LIPS [None]
  - ELECTROCARDIOGRAM T WAVE AMPLITUDE DECREASED [None]
  - CHILLS [None]
  - NASOPHARYNGITIS [None]
  - PERIPHERAL COLDNESS [None]
  - CARDIOMEGALY [None]
  - CARDIOVASCULAR DISORDER [None]
  - HYPERSENSITIVITY [None]
  - PERICARDIAL EFFUSION [None]
  - DYSPNOEA [None]
  - HYPOTENSION [None]
  - HYPERVENTILATION [None]
  - TACHYCARDIA [None]
  - PSORIASIS [None]
